FAERS Safety Report 15789812 (Version 1)
Quarter: 2019Q1

REPORT INFORMATION
  Report Type: Spontaneous
  Country: US (occurrence: US)
  Receive Date: 20190103
  Receipt Date: 20190103
  Transmission Date: 20190417
  Serious: Yes (Hospitalization)
  Sender: FDA-Public Use
  Company Number: None

PATIENT
  Age: 2 Year
  Sex: Male

DRUGS (9)
  1. KALYDECO [Suspect]
     Active Substance: IVACAFTOR
     Indication: CYSTIC FIBROSIS
     Route: 048
  2. CETIRIZINE SYRUP [Concomitant]
  3. ALBUTEROL NEBS 0.083% [Concomitant]
  4. CREON 6,000 UNIT [Concomitant]
  5. INFANT TYLENOL 160MG/5ML [Concomitant]
  6. PROAIR INHALER [Concomitant]
     Active Substance: ALBUTEROL SULFATE
  7. FLONASE [Concomitant]
     Active Substance: FLUTICASONE PROPIONATE
  8. RANITIDINE 15MG/ML [Concomitant]
  9. CHILDRENS MULTIVITAMIN [Concomitant]

REACTIONS (3)
  - Haemophilus infection [None]
  - Pneumonia [None]
  - Respiratory syncytial virus infection [None]

NARRATIVE: CASE EVENT DATE: 20190103
